FAERS Safety Report 7583494 (Version 2)
Quarter: 2013Q2

REPORT INFORMATION
  Report Type: Spontaneous
  Country: US (occurrence: None)
  Receive Date: 20100827
  Receipt Date: 20130604
  Transmission Date: 20140414
  Serious: Yes (Life-Threatening, Hospitalization, Other)
  Sender: FDA-Public Use
  Company Number: 20100385

PATIENT
  Age: 55 Year
  Sex: Male

DRUGS (8)
  1. FOSPHENYTOIN SODIUM [Suspect]
     Indication: CONVULSION PROPHYLAXIS
     Dosage: 1 G LOADING DOSE
     Route: 041
  2. PHENYTOIN SODIUM [Suspect]
     Indication: CONVULSION PROPHYLAXIS
     Route: 042
  3. ESOMEPRAZOLE [Suspect]
     Route: 042
  4. LORAZEPAM [Suspect]
     Indication: PRODUCT USED FOR UNKNOWN INDICATION
  5. VASOPRESSIN INJECTION, USP [Concomitant]
  6. DOBUTAMINE [Concomitant]
  7. ALBUMIN [Concomitant]
  8. NOREPINEPHRINE [Concomitant]

REACTIONS (7)
  - THROMBOCYTOPENIA [None]
  - HYPOTENSION [None]
  - RENAL FAILURE ACUTE [None]
  - HEPATIC ISCHAEMIA [None]
  - CEREBRAL HAEMORRHAGE [None]
  - BASAL GANGLIA HAEMORRHAGE [None]
  - PNEUMONIA [None]
